FAERS Safety Report 15946279 (Version 1)
Quarter: 2019Q1

REPORT INFORMATION
  Report Type: Spontaneous
  Country: FR (occurrence: FR)
  Receive Date: 20190211
  Receipt Date: 20190211
  Transmission Date: 20190417
  Serious: Yes (Hospitalization, Other)
  Sender: FDA-Public Use
  Company Number: FR-AUROBINDO-AUR-APL-2019-006730

PATIENT

DRUGS (4)
  1. AMITRIPTYLINE [Suspect]
     Active Substance: AMITRIPTYLINE
     Indication: POISONING DELIBERATE
     Dosage: 250 MILLIGRAM
     Route: 048
     Dates: start: 20180826, end: 20180826
  2. TRANDOLAPRIL. [Suspect]
     Active Substance: TRANDOLAPRIL
     Indication: PRODUCT USED FOR UNKNOWN INDICATION
     Dosage: 10 MILLIGRAM
     Route: 048
     Dates: start: 20180826, end: 20180826
  3. MIANSERIN [Suspect]
     Active Substance: MIANSERIN
     Indication: PRODUCT USED FOR UNKNOWN INDICATION
     Dosage: 540 MILLIGRAM
     Route: 048
     Dates: start: 20180826, end: 20180826
  4. VERAPAMIL HYDROCHLORIDE. [Suspect]
     Active Substance: VERAPAMIL HYDROCHLORIDE
     Indication: POISONING DELIBERATE
     Dosage: 900 MILLIGRAM
     Route: 048
     Dates: start: 20180826, end: 20180826

REACTIONS (4)
  - Hypotension [Recovered/Resolved]
  - Sinoatrial block [Recovered/Resolved]
  - Malaise [Recovered/Resolved]
  - Hyperlactacidaemia [Recovered/Resolved]

NARRATIVE: CASE EVENT DATE: 20180826
